FAERS Safety Report 9029336 (Version 1)
Quarter: 2013Q1

REPORT INFORMATION
  Report Type: Spontaneous
  Country: US (occurrence: US)
  Receive Date: 20130125
  Receipt Date: 20130125
  Transmission Date: 20140127
  Serious: No
  Sender: FDA-Public Use
  Company Number: US-PFIZER INC-2013027896

PATIENT
  Age: 58 Year
  Sex: Male
  Weight: 132 kg

DRUGS (9)
  1. LYRICA [Suspect]
     Indication: NEURALGIA
     Dosage: 200 MG, 3X/DAY
     Dates: start: 2011
  2. LYRICA [Suspect]
     Indication: NERVE INJURY
  3. CELEBREX [Suspect]
     Indication: INFLAMMATION
     Dosage: 200 MG, DAILY
     Dates: start: 2007
  4. CELEBREX [Suspect]
     Indication: ARTHRITIS
  5. ZOLOFT [Suspect]
     Dosage: 50 MG, DAILY
     Dates: start: 2007
  6. CYMBALTA [Concomitant]
     Indication: OSTEOARTHRITIS
     Dosage: UNK
  7. BENAZEPRIL [Concomitant]
     Indication: BLOOD PRESSURE ABNORMAL
     Dosage: UNK
  8. ATENOLOL [Concomitant]
     Indication: BLOOD PRESSURE ABNORMAL
     Dosage: UNK
  9. ADVAIR DISKUS [Concomitant]
     Dosage: UNK

REACTIONS (1)
  - Sinusitis [Recovered/Resolved]
